FAERS Safety Report 18786927 (Version 2)
Quarter: 2022Q1

REPORT INFORMATION
  Report Type: Spontaneous
  Country: US (occurrence: None)
  Receive Date: 20210125
  Receipt Date: 20220110
  Transmission Date: 20220423
  Serious: No
  Sender: FDA-Public Use
  Company Number: US-ROCHE-2622903

PATIENT
  Sex: Female

DRUGS (18)
  1. RITUXAN [Suspect]
     Active Substance: RITUXIMAB
     Indication: Impaired gastric emptying
     Dosage: ON DAY 1 AND DAY 15 EVERY 4 TO 6 MONTHS (STRENGTH: 500MG/50 ML)
     Route: 042
  2. RITUXAN [Suspect]
     Active Substance: RITUXIMAB
     Dosage: ON DAY 1 AND DAY 15 EVERY 4 TO 6 MONTHS (STRENGTH: 500MG/50 ML)
     Route: 042
     Dates: start: 201612
  3. METOPROLOL SUCCINATE [Concomitant]
     Active Substance: METOPROLOL SUCCINATE
  4. PREDNISONE [Concomitant]
     Active Substance: PREDNISONE
  5. ALBUTEROL SULFATE [Concomitant]
     Active Substance: ALBUTEROL SULFATE
  6. AMLODIPINE BESYLATE [Concomitant]
     Active Substance: AMLODIPINE BESYLATE
  7. DEXILANT [Concomitant]
     Active Substance: DEXLANSOPRAZOLE
  8. DICYCLOMINE HYDROCHLORIDE [Concomitant]
     Active Substance: DICYCLOMINE HYDROCHLORIDE
  9. DIOVAN [Concomitant]
     Active Substance: VALSARTAN
  10. ENBREL [Concomitant]
     Active Substance: ETANERCEPT
  11. FOLIC ACID [Concomitant]
     Active Substance: FOLIC ACID
  12. GABAPENTIN [Concomitant]
     Active Substance: GABAPENTIN
  13. ISOSORBIDE DINITRATE [Concomitant]
     Active Substance: ISOSORBIDE DINITRATE
  14. LANTUS SOLOSTAR [Concomitant]
     Active Substance: INSULIN GLARGINE
  15. LEVOCETIRIZINE DIHYDROCHLORIDE [Concomitant]
     Active Substance: LEVOCETIRIZINE DIHYDROCHLORIDE
  16. LOSARTAN POTASSIUM [Concomitant]
     Active Substance: LOSARTAN POTASSIUM
  17. TRAMADOL HCL [Concomitant]
     Active Substance: TRAMADOL HYDROCHLORIDE
  18. VOLTAREN [Concomitant]
     Active Substance: DICLOFENAC SODIUM

REACTIONS (3)
  - Illness [Not Recovered/Not Resolved]
  - Intentional product use issue [Unknown]
  - Off label use [Unknown]
